FAERS Safety Report 7061267-7 (Version None)
Quarter: 2010Q4

REPORT INFORMATION
  Report Type: 
  Country: None (occurrence: None)
  Receive Date: 20101026
  Receipt Date: 20101019
  Transmission Date: 20110411
  Serious: No
  Sender: FDA-Public Use
  Company Number: US-PFIZER INC-2010111210

PATIENT
  Sex: Male

DRUGS (2)
  1. ZYVOX [Suspect]
     Indication: VARICOSE ULCERATION
     Dosage: 600 MG, 2X/DAY
     Route: 048
     Dates: start: 20100816, end: 20100826
  2. ZYVOX [Suspect]
     Indication: CELLULITIS

REACTIONS (1)
  - DECREASED APPETITE [None]
